FAERS Safety Report 5555203-X (Version None)
Quarter: 2007Q4

REPORT INFORMATION
  Report Type: 
  Country: None (occurrence: None)
  Receive Date: 20071213
  Receipt Date: 20070812
  Transmission Date: 20080405
  Serious: No
  Sender: FDA-Public Use
  Company Number: US-AMGEN-KDL238408

PATIENT
  Sex: Female

DRUGS (1)
  1. ENBREL [Suspect]
     Indication: RHEUMATOID ARTHRITIS
     Route: 058
     Dates: start: 20050901

REACTIONS (7)
  - CATARACT [None]
  - CHOLECYSTECTOMY [None]
  - HALO VISION [None]
  - INTRAOCULAR PRESSURE INCREASED [None]
  - PARAESTHESIA [None]
  - PHOTOPSIA [None]
  - TOOTHACHE [None]
